FAERS Safety Report 25216758 (Version 2)
Quarter: 2025Q2

REPORT INFORMATION
  Report Type: Spontaneous
  Country: US (occurrence: US)
  Receive Date: 20250419
  Receipt Date: 20250605
  Transmission Date: 20250717
  Serious: No
  Sender: APOTEX
  Company Number: US-APOTEX-2025AP004184

PATIENT
  Sex: Female

DRUGS (1)
  1. AZELASTINE HYDROCHLORIDE\FLUTICASONE PROPIONATE [Suspect]
     Active Substance: AZELASTINE HYDROCHLORIDE\FLUTICASONE PROPIONATE
     Indication: Product used for unknown indication
     Dosage: 4 DOSAGE FORM, QD (AT LEAST 10 OF HER DOSE REGIMEN OF 2 SPRAYS EACH NOSTRIL )
     Route: 045

REACTIONS (3)
  - Product dose omission issue [Unknown]
  - Device mechanical issue [Unknown]
  - Product delivery mechanism issue [Unknown]

NARRATIVE: CASE EVENT DATE: 20250301
